FAERS Safety Report 7520723-5 (Version None)
Quarter: 2011Q2

REPORT INFORMATION
  Report Type: 
  Country: None (occurrence: None)
  Receive Date: 20110603
  Receipt Date: 20101124
  Transmission Date: 20111010
  Serious: Yes (Life-Threatening)
  Sender: FDA-Public Use
  Company Number: JP-BAYER-200912609BYL

PATIENT
  Age: 48 Year
  Sex: Female
  Weight: 50 kg

DRUGS (6)
  1. LASIX [Concomitant]
     Dosage: 40 MG (DAILY DOSE), , ORAL
     Route: 048
     Dates: start: 20081021
  2. ALDACTONE [Concomitant]
     Dosage: 25 MG (DAILY DOSE), , ORAL
     Route: 048
     Dates: start: 20081216
  3. NEXAVAR [Suspect]
     Indication: HEPATIC NEOPLASM MALIGNANT
     Route: 048
     Dates: start: 20090629, end: 20090721
  4. URSO 250 [Concomitant]
     Dosage: 600 MG (DAILY DOSE), , ORAL
     Route: 048
     Dates: start: 20081021, end: 20090721
  5. AMINOLEBAN EN [Concomitant]
     Dosage: 100 G (DAILY DOSE), , ORAL
     Route: 048
     Dates: start: 20081125
  6. PORTOLAC [Concomitant]
     Dosage: 18 G (DAILY DOSE), , ORAL
     Route: 048
     Dates: start: 20081021

REACTIONS (3)
  - LARGE INTESTINAL HAEMORRHAGE [None]
  - PALMAR-PLANTAR ERYTHRODYSAESTHESIA SYNDROME [None]
  - HEPATIC ENCEPHALOPATHY [None]
